FAERS Safety Report 18600264 (Version 1)
Quarter: 2020Q4

REPORT INFORMATION
  Report Type: Spontaneous
  Country: US (occurrence: US)
  Receive Date: 20201210
  Receipt Date: 20201210
  Transmission Date: 20210114
  Serious: Yes (Other)
  Sender: FDA-Public Use
  Company Number: None

PATIENT
  Age: 14 Year
  Sex: Female
  Weight: 53.1 kg

DRUGS (1)
  1. DUPIXENT [Suspect]
     Active Substance: DUPILUMAB
     Indication: ASTHMA
     Dosage: ?          OTHER FREQUENCY:EVERY OTHER WEEK;?
     Route: 058

REACTIONS (3)
  - Nasal polyps [None]
  - Tooth disorder [None]
  - Alopecia [None]

NARRATIVE: CASE EVENT DATE: 20201110
